FAERS Safety Report 6826786-4 (Version None)
Quarter: 2010Q3

REPORT INFORMATION
  Report Type: 
  Country: None (occurrence: None)
  Receive Date: 20100709
  Receipt Date: 20100628
  Transmission Date: 20110219
  Serious: Yes (Hospitalization, Other)
  Sender: FDA-Public Use
  Company Number: US-TEVA-239424USA

PATIENT
  Age: 63 Year
  Sex: Female

DRUGS (1)
  1. MEGESTROL ACETATE TABLET 20MG, 40MG [Suspect]
     Indication: BREAST CANCER

REACTIONS (1)
  - MENINGIOMA [None]
